FAERS Safety Report 4578464-2 (Version None)
Quarter: 2005Q1

REPORT INFORMATION
  Report Type: 
  Country: None (occurrence: None)
  Receive Date: 20050202
  Receipt Date: 20050202
  Transmission Date: 20050727
  Serious: Yes (Hospitalization, Disabling)
  Sender: FDA-Public Use
  Company Number: None

PATIENT
  Age: 74 Year
  Sex: Female
  Weight: 90.7194 kg

DRUGS (9)
  1. BEXTRA [Suspect]
     Indication: ARTHRITIS
     Dosage: 1 X DAY ORAL
     Route: 048
     Dates: start: 20030801
  2. BEXTRA [Suspect]
     Indication: ARTHRITIS
     Dosage: 1 X DAY ORAL
     Route: 048
     Dates: start: 20040816
  3. COUMADIN [Suspect]
  4. ATENOLOL [Concomitant]
  5. CARTIA XT [Concomitant]
  6. SLO-BID [Concomitant]
  7. SEREVENT INHLRS [Concomitant]
  8. FLOVENT INHLRS [Concomitant]
  9. PEPCID [Concomitant]

REACTIONS (4)
  - BLOOD PRESSURE FLUCTUATION [None]
  - FATIGUE [None]
  - FEELING ABNORMAL [None]
  - HEART RATE ABNORMAL [None]
